FAERS Safety Report 12996165 (Version 1)
Quarter: 2016Q4

REPORT INFORMATION
  Report Type: Spontaneous
  Country: FR (occurrence: FR)
  Receive Date: 20161203
  Receipt Date: 20161203
  Transmission Date: 20170207
  Serious: Yes (Hospitalization)
  Sender: FDA-Public Use
  Company Number: FR-ASTRAZENECA-2016SF26643

PATIENT
  Age: 33912 Day
  Sex: Female

DRUGS (8)
  1. ALDACTAZINE [Suspect]
     Active Substance: ALTHIAZIDE\SPIRONOLACTONE
     Indication: HYPERTENSION
     Route: 065
     Dates: end: 20151229
  2. PREVISCAN [Concomitant]
     Active Substance: FLUINDIONE
  3. MODOPAR [Concomitant]
     Active Substance: BENSERAZIDE HYDROCHLORIDE\LEVODOPA
  4. ADARTREL [Concomitant]
     Active Substance: ROPINIROLE
  5. LIORESAL [Concomitant]
     Active Substance: BACLOFEN
  6. ATACAND [Suspect]
     Active Substance: CANDESARTAN CILEXETIL
     Indication: HYPERTENSION
     Route: 048
     Dates: end: 20151229
  7. INNOHEP [Concomitant]
     Active Substance: TINZAPARIN SODIUM
  8. KARDEGIC [Concomitant]
     Active Substance: ASPIRIN LYSINE

REACTIONS (6)
  - Abdominal pain [Unknown]
  - Acute kidney injury [Recovered/Resolved]
  - International normalised ratio increased [Unknown]
  - Haematoma [Unknown]
  - Dehydration [Recovered/Resolved]
  - Rhabdomyolysis [Unknown]

NARRATIVE: CASE EVENT DATE: 20151229
